FAERS Safety Report 6018946-X (Version None)
Quarter: 2008Q4

REPORT INFORMATION
  Report Type: 
  Country: None (occurrence: None)
  Receive Date: 20081224
  Receipt Date: 20081210
  Transmission Date: 20090506
  Serious: Yes (Other)
  Sender: FDA-Public Use
  Company Number: BR-PFIZER INC-2008157990

PATIENT

DRUGS (1)
  1. DEPO-PROVERA [Suspect]
     Indication: CONTRACEPTION
     Dosage: 150 MG, EVERY 3 MONTHS
     Dates: start: 20010101

REACTIONS (11)
  - AMENORRHOEA [None]
  - ANXIETY [None]
  - ARRHYTHMIA [None]
  - HYPOAESTHESIA [None]
  - HYPOAESTHESIA ORAL [None]
  - HYPOTHYROIDISM [None]
  - METRORRHAGIA [None]
  - PAIN [None]
  - PELVIC PAIN [None]
  - SOMNOLENCE [None]
  - WEIGHT INCREASED [None]
